FAERS Safety Report 9328798 (Version 2)
Quarter: 2013Q2

REPORT INFORMATION
  Report Type: Spontaneous
  Country: US (occurrence: None)
  Receive Date: 20130531
  Receipt Date: 20130626
  Transmission Date: 20140414
  Serious: Yes (Other)
  Sender: FDA-Public Use
  Company Number: JPI-P-032063

PATIENT
  Age: 38 Year
  Sex: Female

DRUGS (1)
  1. XYREM (500 MILLIGRAM/MILLILITERS, SOLUTION) (SODIUM OXYBATE) [Suspect]
     Indication: HYPERSOMNIA
     Dosage: 4.5GM (2.25 GM, 2 IN 1 D), ORAL
     Route: 048
     Dates: start: 20050223

REACTIONS (4)
  - Catatonia [None]
  - Depression [None]
  - Anxiety [None]
  - Depersonalisation [None]
